FAERS Safety Report 7137839-8 (Version None)
Quarter: 2010Q4

REPORT INFORMATION
  Report Type: 
  Country: None (occurrence: None)
  Receive Date: 20101103
  Receipt Date: 20100820
  Transmission Date: 20110411
  Serious: Yes (Other)
  Sender: FDA-Public Use
  Company Number: US-WYE-H17164010

PATIENT
  Sex: Female
  Weight: 76.73 kg

DRUGS (4)
  1. EFFEXOR XR [Suspect]
     Indication: ANXIETY
     Dosage: RESTARTED AT UNKNOWN DOSE ; 75 MG 1X PER 1 DAY, ORAL
     Route: 048
     Dates: start: 20010101
  2. EFFEXOR XR [Suspect]
     Indication: DEPRESSION
     Dosage: RESTARTED AT UNKNOWN DOSE ; 75 MG 1X PER 1 DAY, ORAL
     Route: 048
     Dates: start: 20010101
  3. AMLODIPINE [Concomitant]
  4. JANUMET (SITAGLIPTIN/METFORMIN) [Concomitant]

REACTIONS (7)
  - AFFECT LABILITY [None]
  - DIZZINESS [None]
  - DRUG WITHDRAWAL SYNDROME [None]
  - FATIGUE [None]
  - FEELING ABNORMAL [None]
  - HEADACHE [None]
  - UNEVALUABLE EVENT [None]
